FAERS Safety Report 4282616-9 (Version None)
Quarter: 2004Q1

REPORT INFORMATION
  Report Type: 
  Country: None (occurrence: None)
  Receive Date: 20040130
  Receipt Date: 20021223
  Transmission Date: 20041129
  Serious: Yes (Other)
  Sender: FDA-Public Use
  Company Number: US-BRISTOL-MYERS SQUIBB COMPANY-12144283

PATIENT

DRUGS (1)
  1. SERZONE [Suspect]
     Route: 048
     Dates: start: 20010601, end: 20020201

REACTIONS (1)
  - HEPATOCELLULAR DAMAGE [None]
